FAERS Safety Report 14228003 (Version 2)
Quarter: 2018Q1

REPORT INFORMATION
  Report Type: Spontaneous
  Country: US (occurrence: US)
  Receive Date: 20171127
  Receipt Date: 20180214
  Transmission Date: 20180508
  Serious: Yes (Other)
  Sender: FDA-Public Use
  Company Number: US-DSJP-DSU-2017-142971

PATIENT

DRUGS (1)
  1. BENICAR HCT [Suspect]
     Active Substance: HYDROCHLOROTHIAZIDE\OLMESARTAN MEDOXOMIL
     Indication: PRODUCT USED FOR UNKNOWN INDICATION
     Dosage: 40/12.5MG, TID
     Dates: start: 20051215, end: 20090803

REACTIONS (13)
  - Sprue-like enteropathy [Recovering/Resolving]
  - Rectal polyp [Recovered/Resolved]
  - Haemorrhoids [Not Recovered/Not Resolved]
  - Rectal haemorrhage [Not Recovered/Not Resolved]
  - Gastrointestinal haemorrhage [Unknown]
  - Incorrect dosage administered [Unknown]
  - Duodenal ulcer [Unknown]
  - Oesophagitis [Recovering/Resolving]
  - Polyp [Recovered/Resolved]
  - Helicobacter infection [Unknown]
  - Gastric ulcer [Recovering/Resolving]
  - Constipation [Not Recovered/Not Resolved]
  - Diverticulum [Not Recovered/Not Resolved]

NARRATIVE: CASE EVENT DATE: 20051215
